FAERS Safety Report 6945662-X (Version None)
Quarter: 2010Q3

REPORT INFORMATION
  Report Type: 
  Country: None (occurrence: None)
  Receive Date: 20100827
  Receipt Date: 20100823
  Transmission Date: 20110219
  Serious: Yes (Hospitalization)
  Sender: FDA-Public Use
  Company Number: GB-MERCK-1008GBR00094

PATIENT
  Age: 81 Year
  Sex: Male

DRUGS (15)
  1. ZOCOR [Suspect]
     Route: 048
     Dates: start: 20100806, end: 20100809
  2. ZOCOR [Suspect]
     Route: 065
  3. NIFEDIPINE [Concomitant]
     Route: 048
     Dates: end: 20010806
  4. ASPIRIN [Concomitant]
     Route: 048
     Dates: start: 20010213
  5. ATENOLOL [Concomitant]
     Route: 048
  6. CANDESARTAN [Concomitant]
     Route: 048
  7. CIMETIDINE [Concomitant]
     Route: 048
     Dates: end: 20100802
  8. CLOPIDOGREL BISULFATE [Concomitant]
     Route: 048
     Dates: start: 20100214
  9. FUROSEMIDE [Concomitant]
     Route: 048
  10. GLIPIZIDE [Concomitant]
     Route: 048
     Dates: start: 20081118
  11. HYDROXOCOBALAMIN [Concomitant]
     Route: 065
  12. VITAMINS (UNSPECIFIED) [Concomitant]
     Route: 048
  13. ACETAMINOPHEN [Concomitant]
     Route: 048
     Dates: start: 20080721
  14. QUININE SULFATE [Concomitant]
     Route: 048
     Dates: start: 20100225
  15. RANITIDINE [Concomitant]
     Route: 048

REACTIONS (4)
  - ACUTE MYOCARDIAL INFARCTION [None]
  - DECREASED APPETITE [None]
  - LIVER FUNCTION TEST ABNORMAL [None]
  - NAUSEA [None]
